FAERS Safety Report 6414975-2 (Version None)
Quarter: 2009Q4

REPORT INFORMATION
  Report Type: 
  Country: None (occurrence: None)
  Receive Date: 20091026
  Receipt Date: 20090219
  Transmission Date: 20100525
  Serious: No
  Sender: FDA-Public Use
  Company Number: US-ABBOTT-09P-163-0557467-00

PATIENT
  Sex: Female
  Weight: 95.34 kg

DRUGS (3)
  1. LUPRON DEPOT [Suspect]
     Indication: UTERINE POLYP
     Route: 030
     Dates: start: 20090204, end: 20090204
  2. VITAMIN TAB [Concomitant]
     Indication: DRUG USE FOR UNKNOWN INDICATION
  3. ZANTAC [Concomitant]
     Indication: DYSPEPSIA

REACTIONS (10)
  - CHEST DISCOMFORT [None]
  - DYSPEPSIA [None]
  - DYSPNOEA [None]
  - FATIGUE [None]
  - METRORRHAGIA [None]
  - SWOLLEN TONGUE [None]
  - THYROID NEOPLASM [None]
  - VIRAL INFECTION [None]
  - VITAMIN D DECREASED [None]
  - WEIGHT DECREASED [None]
